FAERS Safety Report 7919025-4 (Version None)
Quarter: 2011Q4

REPORT INFORMATION
  Report Type: 
  Country: None (occurrence: None)
  Receive Date: 20111116
  Receipt Date: 20111104
  Transmission Date: 20120403
  Serious: Yes (Hospitalization, Other)
  Sender: FDA-Public Use
  Company Number: US-ELI_LILLY_AND_COMPANY-US201109004797

PATIENT
  Age: 92 Year
  Sex: Female

DRUGS (1)
  1. FORTEO [Suspect]
     Indication: OSTEOPOROSIS
     Dosage: UNK, QD
     Route: 065
     Dates: start: 20110401

REACTIONS (7)
  - JOINT INJURY [None]
  - PELVIC FRACTURE [None]
  - GAIT DISTURBANCE [None]
  - HEAD INJURY [None]
  - SPINAL COLUMN INJURY [None]
  - CONTUSION [None]
  - FALL [None]
